FAERS Safety Report 25586854 (Version 1)
Quarter: 2025Q3

REPORT INFORMATION
  Report Type: Spontaneous
  Country: US (occurrence: US)
  Receive Date: 20250721
  Receipt Date: 20250721
  Transmission Date: 20251021
  Serious: No
  Sender: Phathom Pharmaceuticals
  Company Number: US-PHATHOM PHARMACEUTICALS INC.-2025PHT01568

PATIENT
  Age: 82 Year
  Sex: Female

DRUGS (12)
  1. VOQUEZNA [Suspect]
     Active Substance: VONOPRAZAN FUMARATE
     Dosage: 20 MG, 1X/DAY
     Route: 048
  2. VOQUEZNA [Suspect]
     Active Substance: VONOPRAZAN FUMARATE
     Dosage: 10 MG, 1X/DAY
     Route: 048
  3. VOQUEZNA [Suspect]
     Active Substance: VONOPRAZAN FUMARATE
     Route: 048
  4. MIRALAX [Concomitant]
     Active Substance: POLYETHYLENE GLYCOL 3350
  5. BONIVA [Concomitant]
     Active Substance: IBANDRONATE SODIUM
  6. ALBUTEROL [Concomitant]
     Active Substance: ALBUTEROL
  7. SULINDAC [Concomitant]
     Active Substance: SULINDAC
  8. VITAMIN D3 [Concomitant]
     Active Substance: CHOLECALCIFEROL
  9. ESCITALOPRAM OXALATE [Concomitant]
     Active Substance: ESCITALOPRAM OXALATE
  10. ROSUVASTATIN [Concomitant]
     Active Substance: ROSUVASTATIN
  11. ACEBUTOLOL [Concomitant]
     Active Substance: ACEBUTOLOL
  12. LEVOTHYROXINE [Concomitant]
     Active Substance: LEVOTHYROXINE

REACTIONS (4)
  - Headache [Unknown]
  - Dry mouth [Unknown]
  - Diarrhoea [Unknown]
  - Inappropriate schedule of product administration [Not Recovered/Not Resolved]
